FAERS Safety Report 16771655 (Version 1)
Quarter: 2019Q3

REPORT INFORMATION
  Report Type: Spontaneous
  Country: US (occurrence: US)
  Receive Date: 20190715
  Receipt Date: 20190715
  Transmission Date: 20191005
  Serious: No
  Sender: FDA-Public Use
  Company Number: None

PATIENT
  Age: 79 Year
  Sex: Male

DRUGS (1)
  1. PROMACTA [Suspect]
     Active Substance: ELTROMBOPAG OLAMINE
     Dates: start: 2016

REACTIONS (3)
  - Headache [None]
  - Inability to afford medication [None]
  - Influenza [None]

NARRATIVE: CASE EVENT DATE: 20190715
